FAERS Safety Report 24140782 (Version 1)
Quarter: 2024Q3

REPORT INFORMATION
  Report Type: Spontaneous
  Country: CA (occurrence: CA)
  Receive Date: 20240726
  Receipt Date: 20240726
  Transmission Date: 20241016
  Serious: Yes (Hospitalization)
  Sender: GRIFOLS
  Company Number: CA-IGSA-BIG0029915

PATIENT
  Age: 30 Year
  Sex: Male

DRUGS (26)
  1. HUMAN IMMUNOGLOBULIN G [Suspect]
     Active Substance: HUMAN IMMUNOGLOBULIN G
     Indication: Guillain-Barre syndrome
     Dosage: 400 MILLIGRAM/KILOGRAM, UNKNOWN
     Route: 042
  2. ACETAMINOPHEN [Suspect]
     Active Substance: ACETAMINOPHEN
     Indication: Neuralgia
     Dosage: 3900.0 MILLIGRAM
     Route: 062
  3. ACETAMINOPHEN [Suspect]
     Active Substance: ACETAMINOPHEN
     Dosage: 2600 MILLIGRAM
  4. DICLOFENAC SODIUM [Suspect]
     Active Substance: DICLOFENAC\DICLOFENAC SODIUM
     Indication: Neuralgia
  5. FENTANYL [Suspect]
     Active Substance: FENTANYL\FENTANYL CITRATE
     Indication: Neuralgia
     Dosage: 37.5 MILLIGRAM, Q.H.
     Route: 062
  6. FENTANYL [Suspect]
     Active Substance: FENTANYL\FENTANYL CITRATE
     Dosage: 25.0 MILLIGRAM, Q.H.
  7. GABAPENTIN [Suspect]
     Active Substance: GABAPENTIN
     Indication: Neuralgia
     Dosage: 300.0 MILLIGRAM
  8. GABAPENTIN [Suspect]
     Active Substance: GABAPENTIN
     Dosage: 1800.0 MILLIGRAM
  9. GABAPENTIN [Suspect]
     Active Substance: GABAPENTIN
     Dosage: 1200.0 MILLIGRAM
  10. GABAPENTIN [Suspect]
     Active Substance: GABAPENTIN
     Dosage: 3900.0 MILLIGRAM
  11. GABAPENTIN [Suspect]
     Active Substance: GABAPENTIN
     Dosage: 900.0 MILLIGRAM
  12. GABAPENTIN [Suspect]
     Active Substance: GABAPENTIN
     Dosage: 3600.0 MILLIGRAM
  13. HYDROMORPHONE [Suspect]
     Active Substance: HYDROMORPHONE
     Indication: Neuralgia
     Dosage: 1.0 MILLIGRAM
     Route: 048
  14. HYDROMORPHONE HYDROCHLORIDE [Suspect]
     Active Substance: HYDROMORPHONE HYDROCHLORIDE
     Indication: Neuralgia
     Dosage: 30.0 MILLIGRAM
     Route: 030
  15. HYDROMORPHONE HYDROCHLORIDE [Suspect]
     Active Substance: HYDROMORPHONE HYDROCHLORIDE
     Dosage: 7.0 MILLIGRAM
     Route: 030
  16. IBUPROFEN [Suspect]
     Active Substance: IBUPROFEN
     Indication: Neuralgia
     Dosage: 1600.0 MILLIGRAM
  17. KETAMINE\KETOPROFEN\LIDOCAINE [Suspect]
     Active Substance: KETAMINE\KETOPROFEN\LIDOCAINE
     Indication: Neuralgia
     Dosage: 40 MILLIGRAM
     Route: 048
  18. KETAMINE\KETOPROFEN\LIDOCAINE [Suspect]
     Active Substance: KETAMINE\KETOPROFEN\LIDOCAINE
     Dosage: 30 MILLIGRAM
     Route: 042
  19. LIDOCAINE [Suspect]
     Active Substance: LIDOCAINE
     Indication: Neuralgia
     Dosage: 3.84 MILLIGRAM
  20. NABILONE [Suspect]
     Active Substance: NABILONE
     Indication: Neuralgia
     Dosage: 8.0 MILLIGRAM
     Route: 042
  21. NABILONE [Suspect]
     Active Substance: NABILONE
     Dosage: 2.0 MILLIGRAM
  22. OLANZAPINE [Suspect]
     Active Substance: OLANZAPINE
     Dosage: 3.0 MILLIGRAM
  23. OLANZAPINE [Suspect]
     Active Substance: OLANZAPINE
     Dosage: 2.5 MILLIGRAM
  24. PHENYTOIN [Suspect]
     Active Substance: PHENYTOIN
     Indication: Neuralgia
     Dosage: 1500.0 MILLIGRAM
  25. VENLAFAXINE HYDROCHLORIDE [Suspect]
     Active Substance: VENLAFAXINE HYDROCHLORIDE
     Indication: Neuralgia
     Dosage: 75 MILLIGRAM
  26. ZOPICLONE [Suspect]
     Active Substance: ZOPICLONE
     Indication: Neuralgia
     Dosage: 7.5 MILLIGRAM

REACTIONS (2)
  - Inspiratory capacity decreased [Unknown]
  - Drug ineffective [Unknown]
